FAERS Safety Report 25062221 (Version 1)
Quarter: 2025Q1

REPORT INFORMATION
  Report Type: Spontaneous
  Country: JP (occurrence: JP)
  Receive Date: 20250311
  Receipt Date: 20250311
  Transmission Date: 20250409
  Serious: Yes (Hospitalization, Other)
  Sender: SANDOZ
  Company Number: JP-002147023-NVSJ2024JP002886

PATIENT
  Age: 53 Year
  Sex: Male

DRUGS (11)
  1. CANAKINUMAB [Suspect]
     Active Substance: CANAKINUMAB
     Indication: Familial mediterranean fever
     Route: 058
     Dates: start: 20230518
  2. CANAKINUMAB [Suspect]
     Active Substance: CANAKINUMAB
     Route: 058
     Dates: start: 20230615
  3. CANAKINUMAB [Suspect]
     Active Substance: CANAKINUMAB
     Route: 058
     Dates: start: 20230711
  4. CANAKINUMAB [Suspect]
     Active Substance: CANAKINUMAB
     Route: 058
     Dates: start: 20230808
  5. CANAKINUMAB [Suspect]
     Active Substance: CANAKINUMAB
     Route: 058
     Dates: start: 20230905
  6. CANAKINUMAB [Suspect]
     Active Substance: CANAKINUMAB
     Route: 058
     Dates: start: 20231010
  7. CANAKINUMAB [Suspect]
     Active Substance: CANAKINUMAB
     Route: 058
     Dates: start: 20231107, end: 20231107
  8. PREDNISOLONE [Suspect]
     Active Substance: PREDNISOLONE
     Indication: Familial mediterranean fever
     Route: 048
  9. COLCHICINE [Concomitant]
     Active Substance: COLCHICINE
     Indication: Familial mediterranean fever
     Route: 048
     Dates: start: 20230510, end: 20230531
  10. SULFAMETHOXAZOLE\TRIMETHOPRIM [Concomitant]
     Active Substance: SULFAMETHOXAZOLE\TRIMETHOPRIM
     Indication: Prophylaxis
     Route: 048
  11. ELDECALCITOL [Concomitant]
     Active Substance: ELDECALCITOL
     Indication: Prophylaxis
     Route: 048

REACTIONS (8)
  - Rib fracture [Recovering/Resolving]
  - Liver disorder [Recovering/Resolving]
  - Gamma-glutamyltransferase increased [Unknown]
  - Deafness [Recovered/Resolved]
  - Stomatitis [Recovered/Resolved]
  - Nasal congestion [Recovered/Resolved]
  - Abdominal pain [Recovering/Resolving]
  - Therapeutic response decreased [Unknown]

NARRATIVE: CASE EVENT DATE: 20230927
